FAERS Safety Report 8492769-4 (Version None)
Quarter: 2012Q3

REPORT INFORMATION
  Report Type: 
  Country: None (occurrence: None)
  Receive Date: 20120706
  Receipt Date: 20120627
  Transmission Date: 20120928
  Serious: Yes (Hospitalization, Other)
  Sender: FDA-Public Use
  Company Number: US-ASTRAZENECA-2011SE23291

PATIENT
  Age: 69 Year
  Sex: Female

DRUGS (1)
  1. ARIMIDEX [Suspect]
     Route: 048

REACTIONS (9)
  - FALLOPIAN TUBE CANCER [None]
  - UPPER LIMB FRACTURE [None]
  - DEAFNESS UNILATERAL [None]
  - DIARRHOEA [None]
  - OVARIAN CANCER [None]
  - FALL [None]
  - RECTAL OBSTRUCTION [None]
  - WRIST FRACTURE [None]
  - FOOT FRACTURE [None]
